FAERS Safety Report 6907182-8 (Version None)
Quarter: 2010Q3

REPORT INFORMATION
  Report Type: 
  Country: None (occurrence: None)
  Receive Date: 20100802
  Receipt Date: 20100719
  Transmission Date: 20110219
  Serious: Yes (Congenital Anomaly)
  Sender: FDA-Public Use
  Company Number: 2010060761

PATIENT
  Sex: Female
  Weight: 2.2 kg

DRUGS (2)
  1. FRAGMIN [Suspect]
     Indication: COMPLICATION OF PREGNANCY
     Dosage: 5000 IU, 1X/DAY, TRANSPLACENTAL
     Route: 064
     Dates: start: 20081201
  2. TRANDATE [Suspect]
     Indication: HYPERTENSION
     Dosage: 100 MG, 2X/DAY, TRANSPLACENTAL
     Route: 064
     Dates: start: 20080901

REACTIONS (8)
  - ANAL ATRESIA [None]
  - BREECH PRESENTATION [None]
  - CAESAREAN SECTION [None]
  - CONGENITAL HAND MALFORMATION [None]
  - FOETAL GROWTH RESTRICTION [None]
  - MATERNAL CONDITION AFFECTING FOETUS [None]
  - MATERNAL DRUGS AFFECTING FOETUS [None]
  - PREMATURE BABY [None]
